FAERS Safety Report 15028590 (Version 1)
Quarter: 2018Q2

REPORT INFORMATION
  Report Type: Spontaneous
  Country: FR (occurrence: FR)
  Receive Date: 20180619
  Receipt Date: 20180619
  Transmission Date: 20180711
  Serious: Yes (Death)
  Sender: FDA-Public Use
  Company Number: FR-AUROBINDO-AUR-APL-2018-031509

PATIENT
  Age: 34 Year
  Sex: Male

DRUGS (3)
  1. PARACETAMOL [Suspect]
     Active Substance: ACETAMINOPHEN
     Indication: TONSILLITIS
     Dosage: 3 GRAM
     Route: 048
     Dates: start: 20180124, end: 20180125
  2. CLAMOXYL                           /00249602/ [Suspect]
     Active Substance: AMOXICILLIN
     Indication: TONSILLITIS
     Dosage: 3 GRAM
     Route: 048
     Dates: start: 20180124, end: 20180125
  3. TRAMADOL. [Suspect]
     Active Substance: TRAMADOL
     Indication: TONSILLITIS
     Dosage: UNK
     Route: 048
     Dates: start: 20180124, end: 20180125

REACTIONS (1)
  - Cardio-respiratory arrest [Fatal]

NARRATIVE: CASE EVENT DATE: 20180125
